FAERS Safety Report 7374361-8 (Version None)
Quarter: 2011Q1

REPORT INFORMATION
  Report Type: 
  Country: None (occurrence: None)
  Receive Date: 20110325
  Receipt Date: 20110321
  Transmission Date: 20110831
  Serious: No
  Sender: FDA-Public Use
  Company Number: US-TEVA-272909USA

PATIENT
  Sex: Female
  Weight: 59.474 kg

DRUGS (6)
  1. ZONEGRAN [Concomitant]
     Indication: EPILEPSY
  2. CAMILA [Concomitant]
     Indication: CONTRACEPTION
     Dates: start: 20070101
  3. LYRICA [Concomitant]
     Indication: EPILEPSY
  4. PLAN B ONE-STEP [Suspect]
     Indication: POST COITAL CONTRACEPTION
     Route: 048
     Dates: start: 20110312, end: 20110312
  5. AMBIEN CR [Concomitant]
     Indication: INSOMNIA
  6. TRILEPTAL [Concomitant]
     Indication: EPILEPSY

REACTIONS (3)
  - BREAST TENDERNESS [None]
  - DYSMENORRHOEA [None]
  - MENSTRUATION IRREGULAR [None]
